FAERS Safety Report 8453584-0 (Version None)
Quarter: 2012Q2

REPORT INFORMATION
  Report Type: 
  Country: None (occurrence: None)
  Receive Date: 20120614
  Receipt Date: 20120112
  Transmission Date: 20120825
  Serious: Yes (Hospitalization, Other)
  Sender: FDA-Public Use
  Company Number: PL-022773

PATIENT
  Age: 58 Year
  Sex: Male

DRUGS (9)
  1. POTASSIUM CHLORIDE [Concomitant]
  2. ELECTROLYTE FLUIDS [Concomitant]
  3. SPIRONOL [Concomitant]
  4. METFORMIN HYDROCHLORIDE [Concomitant]
  5. HYGROTON [Concomitant]
  6. ALLOPURINOL [Concomitant]
  7. LEUKERAN [Suspect]
     Indication: CHRONIC LYMPHOCYTIC LEUKAEMIA
     Dosage: 10MG/M2 DAYS 1-7 EVERY 28 DAYS (10 MG/M2) ORAL
     Route: 048
     Dates: start: 20110331, end: 20110504
  8. SULFAMETHOXAZOLE AND TRIMETHOPRIM [Concomitant]
  9. POLPRAZOL [Concomitant]

REACTIONS (8)
  - FATIGUE [None]
  - THROMBOCYTOPENIA [None]
  - HAEMOLYTIC ANAEMIA [None]
  - LYMPHADENOPATHY [None]
  - SPLENOMEGALY [None]
  - VERTIGO [None]
  - HAEMATOTOXICITY [None]
  - PYREXIA [None]
